FAERS Safety Report 25475740 (Version 4)
Quarter: 2025Q3

REPORT INFORMATION
  Report Type: Spontaneous
  Country: US (occurrence: US)
  Receive Date: 20250624
  Receipt Date: 20250929
  Transmission Date: 20251020
  Serious: No
  Sender: BIOGEN
  Company Number: US-BIOGEN-2025BI01314648

PATIENT
  Age: 49 Year
  Sex: Male

DRUGS (1)
  1. QALSODY [Suspect]
     Active Substance: TOFERSEN
     Indication: Amyotrophic lateral sclerosis
     Route: 050
     Dates: start: 20250227

REACTIONS (5)
  - CSF test abnormal [Unknown]
  - Tremor [Unknown]
  - Eye inflammation [Unknown]
  - Fall [Recovered/Resolved]
  - CSF white blood cell count increased [Unknown]

NARRATIVE: CASE EVENT DATE: 20250617
